FAERS Safety Report 7946760-4 (Version None)
Quarter: 2011Q4

REPORT INFORMATION
  Report Type: 
  Country: None (occurrence: None)
  Receive Date: 20111129
  Receipt Date: 20111122
  Transmission Date: 20120403
  Serious: Yes (Other)
  Sender: FDA-Public Use
  Company Number: US-TEVA-310801USA

PATIENT
  Age: 10 Year

DRUGS (1)
  1. QVAR 40 [Suspect]

REACTIONS (1)
  - RESPIRATORY DISTRESS [None]
